FAERS Safety Report 7379758-8 (Version None)
Quarter: 2011Q1

REPORT INFORMATION
  Report Type: 
  Country: None (occurrence: None)
  Receive Date: 20110318
  Receipt Date: 20100913
  Transmission Date: 20110831
  Serious: Yes (Death, Hospitalization, Other)
  Sender: FDA-Public Use
  Company Number: MOZO-1000289

PATIENT
  Age: 64 Year
  Sex: Male
  Weight: 98.3 kg

DRUGS (49)
  1. NEXIAM (ESOMEPRAZOLE) [Concomitant]
  2. VFEND [Concomitant]
  3. ONDANSETRON [Concomitant]
  4. VORELOXIN [Concomitant]
  5. ETOPOSIDE [Concomitant]
  6. MOZOBIL [Suspect]
     Indication: HAEMATOPOIETIC STEM CELL MOBILISATION
     Dosage: 6400 MCG, QD, SUBCUTANEOUS
     Route: 058
     Dates: start: 20090812, end: 20090815
  7. MOZOBIL [Suspect]
     Indication: ACUTE MYELOID LEUKAEMIA
     Dosage: 6400 MCG, QD, SUBCUTANEOUS
     Route: 058
     Dates: start: 20090812, end: 20090815
  8. COMPAZINE [Concomitant]
  9. ALLOPURINOL [Concomitant]
  10. VORICONAZOLE [Concomitant]
  11. POTASSIUM (POTASSIUM CHLORIDE) [Concomitant]
  12. CYTARABINE [Concomitant]
  13. FLUDARABINE PHOSPHATE [Concomitant]
  14. PROPOXYPHENE (DEXTROPROPOXYPHENE) [Concomitant]
  15. VITAMIN PREPARATION COMPOUND (VITAMINS NOS) [Concomitant]
  16. CLOTRIMAZOLE W (BETAMETHASONE DIPROPIONATE) [Concomitant]
  17. FOLIC ACID [Concomitant]
  18. FUROSEMIDE [Concomitant]
  19. LINEZOLID [Concomitant]
  20. BACLOFEN [Concomitant]
  21. PAROXETINE HCL [Concomitant]
  22. PENTAMIDINE (PENTAMIDINE) [Concomitant]
  23. INV-AS703026 [Concomitant]
  24. ESOMEPRAZOLE MAGNESIUM (ESOMEPRAZOLE MAGNESIUM) [Concomitant]
  25. AMBIEN [Concomitant]
  26. ATIVAN [Concomitant]
  27. METRONIDAZOLE [Concomitant]
  28. NYSTATIN [Concomitant]
  29. LOPERAMIDE [Concomitant]
  30. LENALIDOMIDE [Concomitant]
  31. TACROLIMUS [Concomitant]
  32. FLUDROCORTISON (FLUDROCORTISONE ACETATE) [Concomitant]
  33. DAUNORUBICIN (DAUNORUBICIN) [Concomitant]
  34. GRANULOCYTE COLONY STIMULATING FACTOR (GRANULOCYTE COLONY STIMULATING [Concomitant]
  35. LEVETIRACETAM (MEGESTROL) [Concomitant]
  36. METOPROLOL (METOPROLOL) [Concomitant]
  37. VALTREX [Concomitant]
  38. LEVOFLOXACIN (LEVAQUIN) [Concomitant]
  39. SODIUM POLYSTYRENE SULFONATE (SODIUM POLYSTYRENE SULFONATE) [Concomitant]
  40. PROMETHAZINE [Concomitant]
  41. SODIUM CHLORIDE 0.9% [Concomitant]
  42. CIPROFLOXACIN [Concomitant]
  43. ESOMEPRAZOLE MAGNESIUM (ESOMEPRAZOLE MAGNESIUM) [Concomitant]
  44. MEGESTROL ACETATE [Concomitant]
  45. THYMOGLOBULIN [Concomitant]
  46. BUSULFAN [Concomitant]
  47. TOLTERODINE TARTRATE [Concomitant]
  48. HEPARIN [Concomitant]
  49. NOVANTRONE [Concomitant]

REACTIONS (22)
  - ACUTE MYELOID LEUKAEMIA [None]
  - GRAFT VERSUS HOST DISEASE [None]
  - CLOSTRIDIAL INFECTION [None]
  - ASCITES [None]
  - ASPERGILLOSIS [None]
  - CEREBRAL MICROHAEMORRHAGE [None]
  - STEM CELL TRANSPLANT [None]
  - INFECTION [None]
  - HYPERTENSION [None]
  - RENAL FAILURE [None]
  - CLOSTRIDIUM TEST POSITIVE [None]
  - PLEURAL EFFUSION [None]
  - ORTHOSTATIC HYPOTENSION [None]
  - BK VIRUS INFECTION [None]
  - NEOPLASM MALIGNANT [None]
  - ATELECTASIS [None]
  - LICHEN PLANUS [None]
  - GASTROINTESTINAL DISORDER [None]
  - PNEUMONIA [None]
  - ENTEROCOCCAL INFECTION [None]
  - PULMONARY OEDEMA [None]
  - PULMONARY GRANULOMA [None]
